FAERS Safety Report 22642317 (Version 1)
Quarter: 2023Q2

REPORT INFORMATION
  Report Type: Report from Study
  Country: ZA (occurrence: None)
  Receive Date: 20230626
  Receipt Date: 20230626
  Transmission Date: 20230722
  Serious: Yes (Death)
  Sender: FDA-Public Use
  Company Number: 2023A147085

PATIENT
  Age: 60 Year
  Sex: Female

DRUGS (6)
  1. BUDESONIDE\FORMOTEROL FUMARATE DIHYDRATE [Suspect]
     Active Substance: BUDESONIDE\FORMOTEROL FUMARATE DIHYDRATE
     Indication: Asthma
     Dosage: 160 UG , FREQUENCY UNKNOWN160.0UG/INHAL UNKNOWN
     Route: 055
  2. IVABRADINE HYDROCHLORIDE [Concomitant]
     Active Substance: IVABRADINE HYDROCHLORIDE
     Indication: Cardiac failure
     Dosage: 5.0MG UNKNOWN
     Route: 048
  3. FUROSEMIDE [Concomitant]
     Active Substance: FUROSEMIDE
     Indication: Hypertension
     Dosage: 40.0MG UNKNOWN
     Route: 048
  4. SPIRACTIN [Concomitant]
     Indication: Hypertension
     Dosage: 25.0MG UNKNOWN
     Route: 048
  5. TAMOXIFEN CITRATE [Concomitant]
     Active Substance: TAMOXIFEN CITRATE
     Indication: Targeted cancer therapy
     Dosage: 20.0MG UNKNOWN
     Route: 048
  6. THEOPHYLLINE ANH [Concomitant]
     Indication: Asthma
     Dosage: 200.0MG UNKNOWN
     Route: 048

REACTIONS (1)
  - Death [Fatal]

NARRATIVE: CASE EVENT DATE: 20230530
